FAERS Safety Report 24223829 (Version 2)
Quarter: 2024Q3

REPORT INFORMATION
  Report Type: Spontaneous
  Country: JP (occurrence: JP)
  Receive Date: 20240819
  Receipt Date: 20240821
  Transmission Date: 20241016
  Serious: Yes (Hospitalization, Other)
  Sender: FERRING
  Company Number: JP-ferring-EVA202401233FERRINGPH

PATIENT

DRUGS (1)
  1. NOCDURNA [Suspect]
     Active Substance: DESMOPRESSIN ACETATE
     Indication: Nocturia
     Dosage: UNK
     Route: 048

REACTIONS (1)
  - Cardiac failure [Recovered/Resolved]
